FAERS Safety Report 4699300-X (Version None)
Quarter: 2005Q2

REPORT INFORMATION
  Report Type: 
  Country: None (occurrence: None)
  Receive Date: 20050624
  Receipt Date: 20050623
  Transmission Date: 20051028
  Serious: Yes (Other)
  Sender: FDA-Public Use
  Company Number: US-GLAXOSMITHKLINE-A0563895B

PATIENT
  Sex: Female

DRUGS (5)
  1. ZOFRAN [Suspect]
     Indication: DRUG USE FOR UNKNOWN INDICATION
  2. RID MOUSSE [Concomitant]
     Indication: LICE INFESTATION
     Dates: start: 20030801
  3. MECLIZINE [Concomitant]
     Indication: DRUG USE FOR UNKNOWN INDICATION
  4. PERMETHRIN [Concomitant]
     Indication: LICE INFESTATION
  5. HEPATITIS B VACCINE [Concomitant]
     Indication: PROPHYLAXIS
     Dates: start: 20031011, end: 20031011

REACTIONS (6)
  - BLOOD BILIRUBIN INCREASED [None]
  - DRUG EXPOSURE DURING PREGNANCY [None]
  - JAUNDICE [None]
  - JAUNDICE NEONATAL [None]
  - PREMATURE BABY [None]
  - RETICULOCYTE COUNT INCREASED [None]
